FAERS Safety Report 18442608 (Version 1)
Quarter: 2020Q4

REPORT INFORMATION
  Report Type: Report from Study
  Country: MX (occurrence: MX)
  Receive Date: 20201029
  Receipt Date: 20201029
  Transmission Date: 20210114
  Serious: Yes (Other)
  Sender: FDA-Public Use
  Company Number: NVSC2020MX286857

PATIENT
  Age: 61 Year
  Sex: Female

DRUGS (1)
  1. TASIGNA [Suspect]
     Active Substance: NILOTINIB
     Indication: CHRONIC MYELOID LEUKAEMIA
     Dosage: 400 MG, Q12H
     Route: 048

REACTIONS (7)
  - Skin lesion [Not Recovered/Not Resolved]
  - Erythema [Recovering/Resolving]
  - Vomiting [Not Recovered/Not Resolved]
  - Pain [Unknown]
  - Impaired gastric emptying [Not Recovered/Not Resolved]
  - Gastrostomy tube site complication [Unknown]
  - Hypersensitivity [Unknown]

NARRATIVE: CASE EVENT DATE: 2018
